FAERS Safety Report 7708131-5 (Version None)
Quarter: 2011Q3

REPORT INFORMATION
  Report Type: 
  Country: None (occurrence: None)
  Receive Date: 20110825
  Receipt Date: 20110815
  Transmission Date: 20111222
  Serious: No
  Sender: FDA-Public Use
  Company Number: US-BIOGENIDEC-2010BI031255

PATIENT
  Sex: Female

DRUGS (2)
  1. TYSABRI [Suspect]
     Indication: MULTIPLE SCLEROSIS
     Route: 042
     Dates: start: 20070523, end: 20100128
  2. TYSABRI [Suspect]
     Route: 042
     Dates: start: 20101001

REACTIONS (2)
  - TEMPERATURE INTOLERANCE [None]
  - MUSCULAR WEAKNESS [None]
